FAERS Safety Report 8504863 (Version 3)
Quarter: 2013Q1

REPORT INFORMATION
  Report Type: Spontaneous
  Country: US (occurrence: US)
  Receive Date: 20120411
  Receipt Date: 20130315
  Transmission Date: 20140127
  Serious: Yes (Hospitalization, Other)
  Sender: FDA-Public Use
  Company Number: US-BAYER-2012-033581

PATIENT
  Age: 51 Year
  Sex: Female
  Weight: 75 kg

DRUGS (7)
  1. YASMIN [Suspect]
     Dosage: UNK
     Dates: start: 20010507, end: 20040622
  2. QUININE SULFATE [Concomitant]
     Dosage: 324 MG, UNK
     Route: 048
  3. CELEBREX [Concomitant]
     Dosage: 200 MG, QD
     Route: 048
  4. PROTONIX [Concomitant]
     Dosage: 40 MG, QD
     Route: 048
  5. MOTRIN [Concomitant]
  6. VITAMINS [Concomitant]
  7. NABUMETONE [Concomitant]
     Dosage: 750 MG, UNK

REACTIONS (33)
  - Transient ischaemic attack [None]
  - Blindness [None]
  - Pain [None]
  - General physical health deterioration [None]
  - Injury [None]
  - Emotional distress [None]
  - Pain [None]
  - Anxiety [None]
  - Mental impairment [None]
  - VIIth nerve paralysis [None]
  - Muscle spasms [None]
  - Hypoaesthesia [None]
  - Fall [None]
  - Loss of consciousness [None]
  - Laceration [None]
  - Swelling face [None]
  - Contusion [None]
  - Uterine haemorrhage [None]
  - Ovarian cyst [None]
  - VIIth nerve paralysis [None]
  - Eye disorder [None]
  - Headache [None]
  - Myalgia [None]
  - Eye pain [None]
  - Paraesthesia [None]
  - Face oedema [None]
  - Pain in extremity [None]
  - Gait disturbance [None]
  - Unevaluable event [None]
  - Pain in jaw [None]
  - Ear pain [None]
  - Neuralgia [None]
  - Deformity [None]
